FAERS Safety Report 8953271 (Version 1)
Quarter: 2012Q4

REPORT INFORMATION
  Report Type: 
  Country: GB (occurrence: GB)
  Receive Date: 20121206
  Receipt Date: 20121206
  Transmission Date: 20130627
  Serious: Yes (Other)
  Sender: FDA-Public Use
  Company Number: GB-VERTEX PHARMACEUTICALS INC.-2012-025680

PATIENT
  Sex: Male
  Weight: 61.4 kg

DRUGS (6)
  1. INCIVO [Suspect]
     Indication: CHRONIC HEPATITIS C
     Dosage: Dosage Form: Tablet
     Route: 048
     Dates: start: 20120919
  2. RIBAVIRIN [Suspect]
     Indication: CHRONIC HEPATITIS C
     Dosage: Dosage Form: Unspecified
     Route: 048
     Dates: start: 20120919
  3. METHADONE [Concomitant]
     Dosage: Dosage Form: Unspecified
     Route: 065
  4. PEG INTERFERON [Concomitant]
     Dosage: Dosage Form: Unspecified
     Route: 065
  5. PRAVASTATIN [Concomitant]
     Dosage: Dosage Form: Unspecified
     Route: 065
  6. TILDIEM [Concomitant]
     Dosage: Dosage Form: Unspecified
     Route: 065

REACTIONS (2)
  - Malaise [Not Recovered/Not Resolved]
  - Anaemia [Not Recovered/Not Resolved]
